FAERS Safety Report 4977401-6 (Version None)
Quarter: 2006Q2

REPORT INFORMATION
  Report Type: 
  Country: None (occurrence: None)
  Receive Date: 20060413
  Receipt Date: 20060329
  Transmission Date: 20061013
  Serious: No
  Sender: FDA-Public Use
  Company Number: MK200601-0320-2

PATIENT
  Age: 63 Year
  Sex: Male

DRUGS (1)
  1. OPTIRAY 320 [Suspect]
     Indication: COMPUTERISED TOMOGRAM ABDOMEN
     Dosage: 100 ML, ONCE
     Dates: start: 20060118, end: 20060118

REACTIONS (9)
  - CYANOSIS [None]
  - DYSPNOEA [None]
  - FLUSHING [None]
  - HYPOAESTHESIA [None]
  - HYPOTENSION [None]
  - NAUSEA [None]
  - POST PROCEDURAL COMPLICATION [None]
  - SENSORY DISTURBANCE [None]
  - SHOCK [None]
